FAERS Safety Report 21259009 (Version 1)
Quarter: 2022Q3

REPORT INFORMATION
  Report Type: Spontaneous
  Country: US (occurrence: None)
  Receive Date: 20220825
  Receipt Date: 20220825
  Transmission Date: 20221026
  Serious: No
  Sender: FDA-Public Use
  Company Number: None

PATIENT
  Age: 85 Year
  Sex: Female
  Weight: 55.29 kg

DRUGS (21)
  1. IBRANCE [Suspect]
     Active Substance: PALBOCICLIB
     Indication: Retroperitoneal cancer
     Dosage: OTHER FREQUENCY : 21D ON 7D OFF;?
     Route: 048
     Dates: start: 202104
  2. AMLODIPINE [Concomitant]
     Active Substance: AMLODIPINE BESYLATE
  3. ASPIRIN [Concomitant]
     Active Substance: ASPIRIN
  4. ATORVASTATIN [Concomitant]
     Active Substance: ATORVASTATIN
  5. CARVEDILOL [Concomitant]
     Active Substance: CARVEDILOL
  6. CIPROFLOXACIN [Concomitant]
     Active Substance: CIPROFLOXACIN
  7. DEXTROMETHORPHAN\GUAIFENESIN [Concomitant]
     Active Substance: DEXTROMETHORPHAN\GUAIFENESIN
  8. DOCUSATE [Concomitant]
     Active Substance: DOCUSATE
  9. DOXYCYCLINE [Concomitant]
     Active Substance: DOXYCYCLINE
  10. FERROUS FUMARATE [Concomitant]
  11. GLIPIZIDE [Concomitant]
  12. HYDRALAZINE [Concomitant]
  13. LEVOFLOXACIN [Concomitant]
     Active Substance: LEVOFLOXACIN
  14. LOSARTAN [Concomitant]
     Active Substance: LOSARTAN
  15. NITFROFURANTON [Concomitant]
  16. NITROGLYCERIN [Concomitant]
     Active Substance: NITROGLYCERIN
  17. NORCO [Concomitant]
     Active Substance: ACETAMINOPHEN\HYDROCODONE BITARTRATE
  18. PANTOPRAZOLE [Concomitant]
  19. PROCHLORPERAZINE [Concomitant]
  20. TYLENOL [Concomitant]
  21. VITAMIN C [Concomitant]

REACTIONS (3)
  - SARS-CoV-2 test positive [None]
  - Cough [None]
  - Therapy interrupted [None]
